FAERS Safety Report 21908959 (Version 1)
Quarter: 2023Q1

REPORT INFORMATION
  Report Type: Spontaneous
  Country: BE (occurrence: BE)
  Receive Date: 20230125
  Receipt Date: 20230125
  Transmission Date: 20230417
  Serious: Yes (Hospitalization)
  Sender: FDA-Public Use
  Company Number: None

PATIENT
  Age: 45 Year
  Sex: Female
  Weight: 73 kg

DRUGS (18)
  1. CARBOPLATIN [Suspect]
     Active Substance: CARBOPLATIN
     Indication: Product used for unknown indication
     Dates: end: 20220914
  2. Muvicol Unidose (trade name), drink in a bag [Concomitant]
     Indication: Constipation
     Dosage: ONE BAG IN CASE OF CONSTIPATION
  3. Litican 50MG [Concomitant]
     Indication: Nausea
     Dosage: 1 TABLET IN CASE OF NAUSEA, MAX 6 PER DAY
  4. PRIMPERAN 10MG [Concomitant]
     Indication: Nausea
     Dosage: 1 TABLET IN CASE OF NAUSEA EVERY 8 HOURS
  5. Motilium  10 MG [Concomitant]
     Indication: Nausea
     Dosage: 1 TABLET IN CASE OF NAUSEA, HALF A HOUR BEFORE THE MEAL, MAX 3 TIMES PER DAY.
  6. SERTRALINE HYDROCHLORIDE [Concomitant]
     Active Substance: SERTRALINE HYDROCHLORIDE
     Indication: Product used for unknown indication
     Dosage: INCREASE TO 50 MG/DAY AFTER 5-7 DAYS
  7. Trazodone EG 100 MG [Concomitant]
     Indication: Product used for unknown indication
  8. EUTHYROX 75 MICROGRAM [Concomitant]
     Indication: Product used for unknown indication
     Dosage: ONLY 2 MORE DAYS, 16-17/09 THAN STOP
  9. Inuvair Nexthaler (trade name) inhalation powder [Concomitant]
     Indication: Product used for unknown indication
     Dosage: 2 INHALATIONS DAILY, RINSE MOUTH AFTER USE
  10. SODIUM PICOSULFATE [Concomitant]
     Active Substance: SODIUM PICOSULFATE
     Indication: Constipation
     Dosage: 5 DROPS IN CASE OF PERSISTENT CONSTIPATION
  11. LIDOCAINE [Concomitant]
     Active Substance: LIDOCAINE
     Indication: Aphthous ulcer
     Dosage: HYDROCORTISONE ACETATE 1 PERCENT  LIDOCAIN HCL 5PERCENT , ORAL GEL AGAINST APHTHOUS STOMATITIS (CANK
  12. MAGNESIUM GLUCONATE [Concomitant]
     Active Substance: MAGNESIUM GLUCONATE
     Indication: Product used for unknown indication
  13. MEDROL [Concomitant]
     Active Substance: METHYLPREDNISOLONE
     Indication: Product used for unknown indication
     Dosage: 1 TABLET ON 16 AND 17/09 THEN STOP
  14. HYDROCORTISONE ACETATE [Concomitant]
     Active Substance: HYDROCORTISONE ACETATE
     Indication: Aphthous ulcer
     Dosage: HYDROCORTISONE ACETATE 1 PERCENT , LIDOCAIN HCL 5 PERCENT , ORAL GEL AGAINST APHTHOUS STOMATITS (CAN
  15. Cetirizin AB 10 MG [Concomitant]
     Indication: Product used for unknown indication
     Dosage: ONLY 2 MORE DAYS: 16-17/09 THEN STOP
  16. ATORVASTATIN CALCIUM [Concomitant]
     Active Substance: ATORVASTATIN CALCIUM
     Indication: Product used for unknown indication
  17. TEMESTA 1 MG [Concomitant]
     Indication: Fatigue
     Dosage: 0.5 TABLET IN CASE OF EXHAUSTION, MAX TWICE A DAY
  18. Pariet 10 MG [Concomitant]
     Indication: Product used for unknown indication

REACTIONS (7)
  - Dyspnoea [None]
  - Dizziness [None]
  - Tachycardia [None]
  - Rash [None]
  - Rash [None]
  - Hypertension [None]
  - Rash [None]

NARRATIVE: CASE EVENT DATE: 20220914
